FAERS Safety Report 6047838-5 (Version None)
Quarter: 2009Q1

REPORT INFORMATION
  Report Type: 
  Country: None (occurrence: None)
  Receive Date: 20090123
  Receipt Date: 20090113
  Transmission Date: 20090719
  Serious: Yes (Hospitalization)
  Sender: FDA-Public Use
  Company Number: DE-PFIZER INC-2009155031

PATIENT

DRUGS (3)
  1. AMLODIPINE BESYLATE [Suspect]
     Indication: HYPERTENSION
     Dosage: 5 MG, 1X/DAY
     Route: 048
     Dates: start: 20000101
  2. ENABETA [Suspect]
     Indication: HYPERTENSION
     Dosage: 10 MG, 1X/DAY
     Route: 048
     Dates: start: 20010101
  3. VOLTAREN [Concomitant]
     Indication: OSTEOARTHRITIS
     Dosage: 50 MG, 1X/DAY
     Dates: start: 20070101

REACTIONS (3)
  - HYPERGLYCAEMIA [None]
  - HYPOKALAEMIA [None]
  - HYPONATRAEMIA [None]
